FAERS Safety Report 17210945 (Version 6)
Quarter: 2020Q2

REPORT INFORMATION
  Report Type: Report from Study
  Country: US (occurrence: US)
  Receive Date: 20191227
  Receipt Date: 20200407
  Transmission Date: 20200713
  Serious: Yes (Hospitalization)
  Sender: FDA-Public Use
  Company Number: US-ACTELION-A-NJ2019-198358

PATIENT
  Sex: Female
  Weight: 112.02 kg

DRUGS (5)
  1. UPTRAVI [Suspect]
     Active Substance: SELEXIPAG
     Dosage: 1000 MCG, BID
     Route: 048
  2. UPTRAVI [Suspect]
     Active Substance: SELEXIPAG
     Dosage: 400 MCG, QD
     Route: 048
     Dates: start: 20191115
  3. OPSUMIT [Suspect]
     Active Substance: MACITENTAN
     Indication: PULMONARY HYPERTENSION
     Dosage: 10 MG, QD
     Route: 048
  4. UPTRAVI [Suspect]
     Active Substance: SELEXIPAG
     Indication: PULMONARY HYPERTENSION
     Dosage: UNK
     Route: 048
     Dates: start: 20191107
  5. UPTRAVI [Suspect]
     Active Substance: SELEXIPAG
     Dosage: 200 MCG, BID
     Route: 048

REACTIONS (14)
  - Pneumonia [Unknown]
  - Myalgia [Unknown]
  - Rash pruritic [Unknown]
  - Nausea [Unknown]
  - Dyspnoea exertional [Unknown]
  - Flushing [Unknown]
  - Mobility decreased [Unknown]
  - Pain in jaw [Unknown]
  - Pruritus [Unknown]
  - Headache [Unknown]
  - Constipation [Unknown]
  - Chest pain [Unknown]
  - Arthralgia [Unknown]
  - Rash [Unknown]
